FAERS Safety Report 24722496 (Version 1)
Quarter: 2024Q4

REPORT INFORMATION
  Report Type: Spontaneous
  Country: US (occurrence: US)
  Receive Date: 20241211
  Receipt Date: 20241211
  Transmission Date: 20250115
  Serious: Yes (Hospitalization, Other)
  Sender: Vantive US Healthcare
  Company Number: US-VANTIVE-2024VAN021600

PATIENT
  Age: 59 Year
  Sex: Male

DRUGS (1)
  1. DIANEAL [Suspect]
     Active Substance: CALCIUM CHLORIDE\DEXTROSE\MAGNESIUM CHLORIDE\SODIUM CHLORIDE\SODIUM LACTATE
     Indication: Peritoneal dialysis
     Dosage: UNK
     Route: 033
     Dates: end: 20241202

REACTIONS (5)
  - Hallucination [Recovering/Resolving]
  - Depressed mood [Recovering/Resolving]
  - Incoherent [Recovering/Resolving]
  - Abdominal pain upper [Recovering/Resolving]
  - Illness [Recovering/Resolving]

NARRATIVE: CASE EVENT DATE: 20241126
